FAERS Safety Report 8210855-0 (Version None)
Quarter: 2012Q1

REPORT INFORMATION
  Report Type: 
  Country: None (occurrence: None)
  Receive Date: 20120315
  Receipt Date: 20120305
  Transmission Date: 20120608
  Serious: No
  Sender: FDA-Public Use
  Company Number: US-BIOGENIDEC-2012BI008899

PATIENT
  Age: 40 Year
  Sex: Male

DRUGS (3)
  1. CANNABIS [Concomitant]
     Indication: MUSCLE TIGHTNESS
  2. CANNABIS [Concomitant]
     Indication: MUSCLE SPASMS
  3. TYSABRI [Suspect]
     Indication: MULTIPLE SCLEROSIS
     Route: 042
     Dates: start: 20090629

REACTIONS (4)
  - MUSCLE TIGHTNESS [None]
  - BALANCE DISORDER [None]
  - MUSCLE SPASMS [None]
  - FATIGUE [None]
